FAERS Safety Report 6756690-1 (Version None)
Quarter: 2010Q2

REPORT INFORMATION
  Report Type: 
  Country: None (occurrence: None)
  Receive Date: 20100603
  Receipt Date: 20100603
  Transmission Date: 20101027
  Serious: No
  Sender: FDA-Public Use
  Company Number: None

PATIENT
  Sex: Female

DRUGS (1)
  1. WELLBUTRIN XL [Suspect]
     Dosage: 150 MG 1 PQD

REACTIONS (1)
  - NO ADVERSE EVENT [None]
